FAERS Safety Report 6126999-3 (Version None)
Quarter: 2009Q1

REPORT INFORMATION
  Report Type: 
  Country: None (occurrence: None)
  Receive Date: 20090320
  Receipt Date: 20090311
  Transmission Date: 20090719
  Serious: Yes (Hospitalization, Disabling)
  Sender: FDA-Public Use
  Company Number: US-MERCK-0811USA01206

PATIENT
  Age: 63 Year
  Sex: Female

DRUGS (4)
  1. FOSAMAX [Suspect]
     Indication: OSTEOPOROSIS
     Route: 048
     Dates: start: 20020901, end: 20070401
  2. FOSAMAX [Suspect]
     Route: 048
     Dates: start: 20021201, end: 20030221
  3. FOSAMAX [Suspect]
     Indication: OSTEOPENIA
     Route: 048
     Dates: start: 20020901, end: 20070401
  4. FOSAMAX [Suspect]
     Route: 048
     Dates: start: 20021201, end: 20030221

REACTIONS (8)
  - ABSCESS [None]
  - ANXIETY [None]
  - ARTHROPATHY [None]
  - DENTAL CARIES [None]
  - FEAR [None]
  - GINGIVAL DISORDER [None]
  - JAW DISORDER [None]
  - KNEE OPERATION [None]
